FAERS Safety Report 14747619 (Version 2)
Quarter: 2018Q2

REPORT INFORMATION
  Report Type: Spontaneous
  Country: US (occurrence: US)
  Receive Date: 20180411
  Receipt Date: 20180525
  Transmission Date: 20180711
  Serious: No
  Sender: FDA-Public Use
  Company Number: US-ACTELION-A-NJ2018-167408

PATIENT
  Age: 60 Year
  Sex: Male

DRUGS (5)
  1. ORENITRAM [Concomitant]
     Active Substance: TREPROSTINIL
  2. LASIX [Concomitant]
     Active Substance: FUROSEMIDE
     Dosage: UNK, QD
  3. LASIX [Concomitant]
     Active Substance: FUROSEMIDE
     Dosage: UNK, BID
  4. ADCIRCA [Concomitant]
     Active Substance: TADALAFIL
  5. OPSUMIT [Suspect]
     Active Substance: MACITENTAN
     Indication: PULMONARY HYPERTENSION
     Dosage: 10 MG, QD
     Route: 048
     Dates: start: 20180121, end: 20180129

REACTIONS (12)
  - Condition aggravated [Unknown]
  - Hypoxia [Not Recovered/Not Resolved]
  - Fluid retention [Unknown]
  - Abdominal distension [Recovered/Resolved]
  - Cough [Not Recovered/Not Resolved]
  - Right ventricular failure [Unknown]
  - Fluid overload [Unknown]
  - Oedema [Unknown]
  - Dyspnoea [Unknown]
  - Walking distance test abnormal [Unknown]
  - Weight increased [Recovered/Resolved with Sequelae]
  - Orthopnoea [Unknown]

NARRATIVE: CASE EVENT DATE: 20180124
